FAERS Safety Report 9684368 (Version 1)
Quarter: 2013Q4

REPORT INFORMATION
  Report Type: Spontaneous
  Country: US (occurrence: US)
  Receive Date: 20131112
  Receipt Date: 20131112
  Transmission Date: 20140711
  Serious: Yes (Death, Other)
  Sender: FDA-Public Use
  Company Number: US-CUBIST PHARMACEUTICAL, INC.-2012S1000798

PATIENT
  Age: 50 Year
  Sex: Female
  Weight: 90.7 kg

DRUGS (6)
  1. CUBICIN [Suspect]
     Indication: DIABETIC FOOT
     Dosage: 5.5 MG/KG, UNK
     Route: 065
  2. CUBICIN [Suspect]
     Dosage: 500 MG, UNK
     Route: 065
  3. CUBICIN [Suspect]
     Dosage: 9.9 MG/KG, UNK
     Route: 065
  4. CUBICIN [Suspect]
     Dosage: 900 MG, UNK
     Route: 065
  5. CUBICIN [Suspect]
     Dosage: 5.5 MG/KG, UNK
     Route: 065
  6. CUBICIN [Suspect]
     Dosage: 500 MG, UNK
     Route: 065

REACTIONS (1)
  - Neuropathy peripheral [Not Recovered/Not Resolved]
